FAERS Safety Report 9781391 (Version 2)
Quarter: 2013Q4

REPORT INFORMATION
  Report Type: Report from Study
  Country: US (occurrence: US)
  Receive Date: 20131224
  Receipt Date: 20131231
  Transmission Date: 20140711
  Serious: Yes (Hospitalization)
  Sender: FDA-Public Use
  Company Number: US-ACTELION-A-NJ2013-92555

PATIENT
  Age: 4 Year
  Sex: Female

DRUGS (5)
  1. TRACLEER [Suspect]
     Indication: PULMONARY ARTERIAL HYPERTENSION
     Dosage: 15.625 MG, BID
     Route: 048
  2. ADCIRCA [Concomitant]
  3. REMODULIN [Concomitant]
     Dosage: 70 NG/KG, PER MIN
  4. XOPENEX [Concomitant]
     Dosage: UNK, Q4HRS PRN
  5. TADALAFIL [Concomitant]
     Dosage: 10 MG, QD
     Route: 048

REACTIONS (13)
  - Pneumonia viral [Unknown]
  - Productive cough [Unknown]
  - Upper respiratory tract infection [Unknown]
  - Hypoxia [Unknown]
  - Pulmonary hypertension [Unknown]
  - Hypophagia [Recovering/Resolving]
  - Rhinorrhoea [Unknown]
  - Nasal congestion [Unknown]
  - Oxygen saturation decreased [Unknown]
  - Pallor [Unknown]
  - Vomiting [Unknown]
  - Tachycardia [Unknown]
  - Cough [Unknown]
